FAERS Safety Report 23544888 (Version 1)
Quarter: 2024Q1

REPORT INFORMATION
  Report Type: Other
  Country: ES (occurrence: ES)
  Receive Date: 20240220
  Receipt Date: 20240220
  Transmission Date: 20240409
  Serious: Yes (Death, Hospitalization, Other)
  Sender: FDA-Public Use
  Company Number: ES-Merck KGaA-9019729

PATIENT
  Age: 62 Year
  Sex: Male

DRUGS (19)
  1. METFORMIN HYDROCHLORIDE [Suspect]
     Active Substance: METFORMIN HYDROCHLORIDE
     Indication: Type 2 diabetes mellitus
     Dosage: 3400 MG, QD
     Route: 048
  2. METFORMIN HYDROCHLORIDE [Suspect]
     Active Substance: METFORMIN HYDROCHLORIDE
     Dosage: 850 MG,BID
     Route: 048
  3. LEVOTHYROXINE SODIUM [Interacting]
     Active Substance: LEVOTHYROXINE SODIUM
     Indication: Hypothyroidism
     Dosage: 450 UNK
  4. LEVOTHYROXINE SODIUM [Interacting]
     Active Substance: LEVOTHYROXINE SODIUM
     Dosage: 100-200 MG.?FREQUENCY TEXT: 3-0-0-0?150 UG QD (ONCE A DAY)
  5. VALPROIC ACID [Interacting]
     Active Substance: VALPROIC ACID
     Indication: Epilepsy
     Dosage: 500 MG,TID
  6. VALPROIC ACID [Interacting]
     Active Substance: VALPROIC ACID
     Indication: Mania
     Dosage: 4500 MG, QD
  7. CLONAZEPAM [Interacting]
     Active Substance: CLONAZEPAM
     Indication: Epilepsy
     Dosage: FREQUENCY TEXT: 1-1-1-1?8 MG ONCE A DAY
  8. CLONAZEPAM [Interacting]
     Active Substance: CLONAZEPAM
     Dosage: 0.5 MG EVERY 6 HOURS
  9. FLUTICASONE FUROATE\SALMETEROL XINAFOATE [Interacting]
     Active Substance: FLUTICASONE FUROATE\SALMETEROL XINAFOATE
     Indication: Asthma
     Dosage: 1 DF, BID
  10. FLUTICASONE FUROATE\SALMETEROL XINAFOATE [Interacting]
     Active Substance: FLUTICASONE FUROATE\SALMETEROL XINAFOATE
     Dosage: 1 DF, BID
  11. LORATADINE [Interacting]
     Active Substance: LORATADINE
     Indication: Rhinitis allergic
     Dosage: FREQUENCY TEXT: FOR 5 DAYS,1-0-0-0
  12. HALOPERIDOL [Interacting]
     Active Substance: HALOPERIDOL
     Indication: Neuroleptic malignant syndrome
     Dosage: 10-20 MG??FREQUENCY TEXT: 1-1-1-0
  13. HALOPERIDOL [Interacting]
     Active Substance: HALOPERIDOL
     Indication: Psychotic disorder
     Dosage: FREQUENCY TEXT: 1-1-1-0?5 MG 3 TIMES A DAY
  14. QUETIAPINE FUMARATE [Interacting]
     Active Substance: QUETIAPINE FUMARATE
     Indication: Schizophrenia
     Dosage: 3600 MG, QD
  15. QUETIAPINE FUMARATE [Interacting]
     Active Substance: QUETIAPINE FUMARATE
     Indication: Major depression
     Dosage: 1200 MG,QD
  16. QUETIAPINE FUMARATE [Interacting]
     Active Substance: QUETIAPINE FUMARATE
     Dosage: 400 MG,TID, CHRONIC
  17. FLUTICASONE PROPIONATE\SALMETEROL XINAFOATE [Interacting]
     Active Substance: FLUTICASONE PROPIONATE\SALMETEROL XINAFOATE
     Indication: Asthma
     Dosage: 4 DF, QD
     Route: 048
  18. TIOTROPIUM BROMIDE [Suspect]
     Active Substance: TIOTROPIUM BROMIDE
     Indication: Chronic obstructive pulmonary disease
     Dosage: 5 UG,QD,2 PUFFS
  19. TIOTROPIUM BROMIDE [Suspect]
     Active Substance: TIOTROPIUM BROMIDE
     Dosage: 2.5 UG,QD

REACTIONS (11)
  - Coma [Fatal]
  - Cardiac failure [Fatal]
  - Hyperprolactinaemia [Fatal]
  - Ventricular fibrillation [Fatal]
  - Drug interaction [Fatal]
  - Prescribed overdose [Fatal]
  - Off label use [Fatal]
  - Pruritus [Unknown]
  - Hypothyroidism [Unknown]
  - Type 2 diabetes mellitus [Unknown]
  - Loss of consciousness [Not Recovered/Not Resolved]
